FAERS Safety Report 11409081 (Version 10)
Quarter: 2019Q3

REPORT INFORMATION
  Report Type: Report from Study
  Country: US (occurrence: US)
  Receive Date: 20150824
  Receipt Date: 20190917
  Transmission Date: 20191004
  Serious: Yes (Other)
  Sender: FDA-Public Use
  Company Number: PHHY2014US136005

PATIENT
  Age: 41 Year
  Sex: Female

DRUGS (2)
  1. GILENYA [Suspect]
     Active Substance: FINGOLIMOD HYDROCHLORIDE
     Indication: MULTIPLE SCLEROSIS
     Dosage: UNK, QD
     Route: 048
  2. GILENYA [Suspect]
     Active Substance: FINGOLIMOD HYDROCHLORIDE
     Dosage: UNK

REACTIONS (50)
  - Urticaria [Recovered/Resolved]
  - Non-cardiac chest pain [Recovered/Resolved]
  - Tongue ulceration [Recovered/Resolved]
  - Oedema peripheral [Recovered/Resolved]
  - Gait disturbance [Unknown]
  - Balance disorder [Recovered/Resolved]
  - Migraine [Unknown]
  - Oesophageal ulcer [Recovered/Resolved]
  - Visual field defect [Recovered/Resolved]
  - Flushing [Recovered/Resolved]
  - Mouth ulceration [Recovered/Resolved]
  - Blood bilirubin increased [Unknown]
  - Fall [Recovered/Resolved]
  - Haemangioma [Unknown]
  - Nausea [Recovered/Resolved]
  - Hypoaesthesia [Recovered/Resolved]
  - Pruritus [Recovered/Resolved]
  - Pain in extremity [Recovered/Resolved]
  - Herpes zoster [Recovered/Resolved]
  - Rash [Recovered/Resolved]
  - Tremor [Recovered/Resolved]
  - Pain [Recovered/Resolved]
  - Gait disturbance [Recovered/Resolved]
  - Dysarthria [Unknown]
  - Obesity [Recovered/Resolved]
  - Intertrigo [Unknown]
  - Multiple sclerosis relapse [Recovered/Resolved]
  - Pharyngitis [Recovered/Resolved]
  - Asthenia [Recovered/Resolved]
  - Vision blurred [Recovered/Resolved]
  - Faeces discoloured [Recovered/Resolved]
  - Milia [Unknown]
  - Seborrhoeic dermatitis [Unknown]
  - Pain [Recovered/Resolved]
  - Pharyngitis [Recovered/Resolved]
  - Chest discomfort [Recovered/Resolved]
  - Burning sensation [Recovered/Resolved]
  - Fatigue [Unknown]
  - Anxiety [Recovered/Resolved]
  - Dyspepsia [Recovered/Resolved]
  - Limb discomfort [Recovered/Resolved]
  - Melanocytic naevus [Unknown]
  - Acrochordon [Unknown]
  - Compression fracture [Unknown]
  - Glossitis [Recovered/Resolved]
  - Flushing [Recovered/Resolved]
  - Headache [Recovered/Resolved]
  - Disturbance in attention [Unknown]
  - Lentigo [Unknown]
  - Vitamin D deficiency [Unknown]

NARRATIVE: CASE EVENT DATE: 20140516
